FAERS Safety Report 9248696 (Version 1)
Quarter: 2013Q1

REPORT INFORMATION
  Report Type: Spontaneous
  Country: US (occurrence: None)
  Receive Date: 20121120
  Receipt Date: 20121120
  Transmission Date: 20140127
  Serious: No
  Sender: FDA-Public Use
  Company Number: 1000038358

PATIENT
  Age: 36 Year
  Sex: Male

DRUGS (2)
  1. VIIBRYD [Suspect]
     Indication: ANXIETY
     Dosage: 10 MG (10 MG, 1 IN 1 D)
     Dates: start: 201208, end: 201208
  2. ATIVAN (LORAZEPAM) (LORAZEPAM) [Concomitant]

REACTIONS (2)
  - Rash pruritic [None]
  - Off label use [None]
